FAERS Safety Report 17901023 (Version 3)
Quarter: 2021Q2

REPORT INFORMATION
  Report Type: Spontaneous
  Country: US (occurrence: US)
  Receive Date: 20200616
  Receipt Date: 20210430
  Transmission Date: 20210717
  Serious: No
  Sender: FDA-Public Use
  Company Number: US-ASTRAZENECA-2020SE67420

PATIENT
  Sex: Female
  Weight: 145.2 kg

DRUGS (1)
  1. BYDUREON BCISE [Suspect]
     Active Substance: EXENATIDE
     Indication: TYPE 2 DIABETES MELLITUS
     Route: 058
     Dates: start: 202003

REACTIONS (2)
  - Device malfunction [Not Recovered/Not Resolved]
  - Injection site extravasation [Unknown]
